FAERS Safety Report 19696414 (Version 1)
Quarter: 2021Q3

REPORT INFORMATION
  Report Type: Spontaneous
  Country: KR (occurrence: KR)
  Receive Date: 20210813
  Receipt Date: 20210813
  Transmission Date: 20211014
  Serious: Yes (Other)
  Sender: FDA-Public Use
  Company Number: KR-SUN PHARMACEUTICAL INDUSTRIES LTD-2021RR-307719

PATIENT
  Age: 28 Year
  Sex: Female

DRUGS (5)
  1. NORADRENALINE [Suspect]
     Active Substance: NOREPINEPHRINE
     Indication: HYPOTENSION
     Dosage: 2 MICROGRAM /MIN
     Route: 065
  2. ADRENALINE [Suspect]
     Active Substance: EPINEPHRINE
     Indication: DYSMENORRHOEA
     Dosage: 1 MILLIGRAM PER MILLILITRE, ONCE
     Route: 042
  3. NORADRENALINE [Suspect]
     Active Substance: NOREPINEPHRINE
     Dosage: 5 MICROGRAM /MIN
     Route: 065
  4. FUROSEMIDE. [Suspect]
     Active Substance: FUROSEMIDE
     Indication: CARDIAC FAILURE CONGESTIVE
  5. FUROSEMIDE. [Suspect]
     Active Substance: FUROSEMIDE
     Indication: PULMONARY OEDEMA
     Dosage: 20 MG/2MG
     Route: 042

REACTIONS (5)
  - Hypotension [Recovered/Resolved]
  - Drug ineffective [Unknown]
  - Medication error [Unknown]
  - Accidental overdose [Recovered/Resolved]
  - Cardiomyopathy [Recovered/Resolved]
